FAERS Safety Report 8521867-1 (Version None)
Quarter: 2012Q3

REPORT INFORMATION
  Report Type: 
  Country: None (occurrence: None)
  Receive Date: 20120719
  Receipt Date: 20120515
  Transmission Date: 20120928
  Serious: Yes (Hospitalization)
  Sender: FDA-Public Use
  Company Number: US-BRISTOL-MYERS SQUIBB COMPANY-16594558

PATIENT
  Age: 75 Year
  Sex: Female

DRUGS (1)
  1. YERVOY [Suspect]
     Dosage: NO OF TREATMENT:2

REACTIONS (1)
  - DIARRHOEA [None]
